FAERS Safety Report 17762158 (Version 4)
Quarter: 2020Q4

REPORT INFORMATION
  Report Type: Report from Study
  Country: None (occurrence: US)
  Receive Date: 20200508
  Receipt Date: 20201120
  Transmission Date: 20210113
  Serious: Yes (Hospitalization)
  Sender: FDA-Public Use
  Company Number: US-ABBVIE-20K-163-3395114-00

PATIENT
  Sex: Female
  Weight: 128.94 kg

DRUGS (1)
  1. HUMIRA [Suspect]
     Active Substance: ADALIMUMAB
     Indication: CROHN^S DISEASE
     Dosage: CITRATE FREE
     Route: 058
     Dates: start: 20200211

REACTIONS (7)
  - Large intestinal stenosis [Unknown]
  - Malaise [Unknown]
  - Postoperative ileus [Unknown]
  - Gastrointestinal scarring [Recovering/Resolving]
  - Intestinal obstruction [Recovered/Resolved]
  - Furuncle [Not Recovered/Not Resolved]
  - Nausea [Unknown]

NARRATIVE: CASE EVENT DATE: 2020
